FAERS Safety Report 11852597 (Version 1)
Quarter: 2015Q4

REPORT INFORMATION
  Report Type: Spontaneous
  Country: IT (occurrence: IT)
  Receive Date: 20151218
  Receipt Date: 20151218
  Transmission Date: 20160305
  Serious: Yes (Other)
  Sender: FDA-Public Use
  Company Number: IT-ASTRAZENECA-2015SF26626

PATIENT
  Age: 26620 Day
  Sex: Male
  Weight: 90 kg

DRUGS (1)
  1. BRILIQUE [Suspect]
     Active Substance: TICAGRELOR
     Indication: PLATELET AGGREGATION INHIBITION
     Dosage: 180 MG, DAILY, 90 MG FILM COATED TABLET
     Route: 048
     Dates: start: 20151204, end: 20151206

REACTIONS (2)
  - Dyspnoea [Unknown]
  - Cardiac arrest [Unknown]

NARRATIVE: CASE EVENT DATE: 20151206
